FAERS Safety Report 4335604-8 (Version None)
Quarter: 2004Q2

REPORT INFORMATION
  Report Type: 
  Country: None (occurrence: None)
  Receive Date: 20040409
  Receipt Date: 20040319
  Transmission Date: 20050107
  Serious: Yes (Disabling)
  Sender: FDA-Public Use
  Company Number: US-MERCK-0403USA01900

PATIENT
  Age: 34 Year
  Sex: Male

DRUGS (5)
  1. HYDROXYCUT [Concomitant]
     Indication: MEDICAL DIET
     Route: 065
  2. PROPECIA [Suspect]
     Indication: ALOPECIA
     Route: 048
     Dates: start: 20040101
  3. PROPECIA [Suspect]
     Route: 048
     Dates: start: 20040101
  4. ZOLOFT [Concomitant]
     Route: 065
  5. AMBIEN [Concomitant]
     Indication: SLEEP DISORDER THERAPY
     Route: 065

REACTIONS (1)
  - ALOPECIA [None]
